FAERS Safety Report 6138699-4 (Version None)
Quarter: 2009Q1

REPORT INFORMATION
  Report Type: 
  Country: None (occurrence: None)
  Receive Date: 20090331
  Receipt Date: 20090323
  Transmission Date: 20090719
  Serious: Yes (Other)
  Sender: FDA-Public Use
  Company Number: CA-JNJFOC-20090306236

PATIENT
  Sex: Female

DRUGS (3)
  1. EXTRA STRENGTH TYLENOL SINUS DAYTIME [Suspect]
     Indication: SINUS HEADACHE
     Route: 048
  2. MICARDIS [Concomitant]
     Indication: HYPERTENSION
  3. UNSPECIFIED BLOOD PRESSURE MEDICATION [Concomitant]

REACTIONS (1)
  - HYPERTENSION [None]
